FAERS Safety Report 13352610 (Version 1)
Quarter: 2017Q1

REPORT INFORMATION
  Report Type: Spontaneous
  Country: JP (occurrence: JP)
  Receive Date: 20170320
  Receipt Date: 20170320
  Transmission Date: 20170429
  Serious: Yes (Hospitalization)
  Sender: FDA-Public Use
  Company Number: JP-LEO PHARMA-300289

PATIENT
  Age: 59 Year
  Sex: Male
  Weight: 55 kg

DRUGS (6)
  1. VALSARTAN. [Suspect]
     Active Substance: VALSARTAN
     Indication: HYPERTENSION
     Route: 048
  2. TEGAFUR [Concomitant]
     Active Substance: TEGAFUR
     Indication: SMALL INTESTINE CARCINOMA
  3. STELARA [Suspect]
     Active Substance: USTEKINUMAB
     Indication: PSORIASIS
     Dosage: 90 MG, 1 IN 4 WEEK
     Route: 058
     Dates: start: 20131028, end: 20161205
  4. CISPLATIN. [Concomitant]
     Active Substance: CISPLATIN
     Indication: SMALL INTESTINE CARCINOMA
     Dates: start: 201702
  5. PROTOPIC [Suspect]
     Active Substance: TACROLIMUS
     Indication: PSORIASIS
     Route: 061
  6. LANSOPRAZOLE. [Suspect]
     Active Substance: LANSOPRAZOLE
     Indication: PRODUCT USED FOR UNKNOWN INDICATION

REACTIONS (2)
  - Small intestine carcinoma [Not Recovered/Not Resolved]
  - Product use issue [Unknown]

NARRATIVE: CASE EVENT DATE: 20170202
